FAERS Safety Report 11987812 (Version 2)
Quarter: 2016Q2

REPORT INFORMATION
  Report Type: Spontaneous
  Country: US (occurrence: US)
  Receive Date: 20160202
  Receipt Date: 20160413
  Transmission Date: 20160815
  Serious: No
  Sender: FDA-Public Use
  Company Number: US-JNJFOC-20160117327

PATIENT
  Sex: Female

DRUGS (1)
  1. IMBRUVICA [Suspect]
     Active Substance: IBRUTINIB
     Indication: WALDENSTROM^S MACROGLOBULINAEMIA
     Route: 048
     Dates: start: 20150702

REACTIONS (3)
  - Tooth disorder [Recovered/Resolved]
  - Localised infection [Unknown]
  - Immunoglobulins abnormal [Unknown]

NARRATIVE: CASE EVENT DATE: 201603
